FAERS Safety Report 19328264 (Version 1)
Quarter: 2021Q2

REPORT INFORMATION
  Report Type: Spontaneous
  Country: RU (occurrence: RU)
  Receive Date: 20210528
  Receipt Date: 20210528
  Transmission Date: 20210717
  Serious: Yes (Other)
  Sender: FDA-Public Use
  Company Number: NVSC2021RU113904

PATIENT
  Age: 64 Year
  Sex: Female
  Weight: 64 kg

DRUGS (4)
  1. FASLODEX [Concomitant]
     Active Substance: FULVESTRANT
     Indication: BREAST CANCER
     Dosage: 500 MG
     Route: 030
     Dates: start: 20210430, end: 20210430
  2. RISARG [RIBOCICLIB SUCCINATE] [Suspect]
     Active Substance: RIBOCICLIB SUCCINATE
     Indication: BREAST CANCER
     Dosage: 600 MG, QD
     Route: 048
     Dates: start: 20210430, end: 20210514
  3. FENDIVIA [Suspect]
     Active Substance: FENTANYL
     Indication: BREAST CANCER
     Dosage: 25 UG, QH (EPIDERMAL ADMINISTRATION)
     Route: 065
     Dates: start: 202101
  4. SODIUM CHLORIDE. [Concomitant]
     Active Substance: SODIUM CHLORIDE
     Indication: PRODUCT USED FOR UNKNOWN INDICATION
     Dosage: 100 ML
     Route: 041
     Dates: start: 20210430, end: 20210430

REACTIONS (2)
  - Dry eye [Recovering/Resolving]
  - Eye pruritus [Recovering/Resolving]

NARRATIVE: CASE EVENT DATE: 20210504
